FAERS Safety Report 7535257-1 (Version None)
Quarter: 2011Q2

REPORT INFORMATION
  Report Type: 
  Country: None (occurrence: None)
  Receive Date: 20110609
  Receipt Date: 20091005
  Transmission Date: 20111010
  Serious: No
  Sender: FDA-Public Use
  Company Number: 2009BI032052

PATIENT
  Age: 49 Year
  Sex: Female

DRUGS (2)
  1. TYSABRI [Suspect]
     Indication: MULTIPLE SCLEROSIS
     Route: 042
     Dates: start: 20090611
  2. VITAMIN D [Concomitant]
     Dates: start: 20090618

REACTIONS (14)
  - MUSCULOSKELETAL DISORDER [None]
  - SLUGGISHNESS [None]
  - CONFUSIONAL STATE [None]
  - HUNGER [None]
  - WEIGHT INCREASED [None]
  - MUSCULAR WEAKNESS [None]
  - LETHARGY [None]
  - FRUSTRATION [None]
  - INCREASED APPETITE [None]
  - MENTAL IMPAIRMENT [None]
  - HYPERPHAGIA [None]
  - HEAT EXHAUSTION [None]
  - MOBILITY DECREASED [None]
  - FATIGUE [None]
